FAERS Safety Report 6469513-5 (Version None)
Quarter: 2009Q4

REPORT INFORMATION
  Report Type: 
  Country: None (occurrence: None)
  Receive Date: 20091203
  Receipt Date: 20091124
  Transmission Date: 20100525
  Serious: Yes (Hospitalization)
  Sender: FDA-Public Use
  Company Number: IN-PFIZER INC-2009302413

PATIENT
  Age: 60 Year
  Sex: Male
  Weight: 65 kg

DRUGS (3)
  1. DALACIN [Suspect]
     Indication: DIABETIC FOOT INFECTION
     Dosage: 600 MG, 3X/DAY
     Route: 042
     Dates: start: 20091118, end: 20091119
  2. MAGNEX [Concomitant]
     Indication: DIABETIC FOOT INFECTION
     Dosage: 1.5 G, 2X/DAY
     Route: 042
     Dates: start: 20091118, end: 20091119
  3. AUGMENTIN [Concomitant]
     Indication: DIABETIC FOOT INFECTION
     Dosage: 1.5 G, 2X/DAY
     Route: 042
     Dates: start: 20091118, end: 20091119

REACTIONS (3)
  - CARDIAC FAILURE [None]
  - CHILLS [None]
  - PYREXIA [None]
